FAERS Safety Report 6806027-4 (Version None)
Quarter: 2010Q2

REPORT INFORMATION
  Report Type: 
  Country: None (occurrence: None)
  Receive Date: 20100629
  Receipt Date: 20080102
  Transmission Date: 20101027
  Serious: No
  Sender: FDA-Public Use
  Company Number: US-PFIZER INC-2007097175

PATIENT
  Age: 71 Year
  Sex: Male

DRUGS (1)
  1. ZYVOX [Suspect]
     Indication: CELLULITIS
     Dates: start: 20071021, end: 20071108

REACTIONS (3)
  - GINGIVAL DISCOLOURATION [None]
  - TONGUE DISCOLOURATION [None]
  - TOOTH DISCOLOURATION [None]
